FAERS Safety Report 7088509-6 (Version None)
Quarter: 2010Q4

REPORT INFORMATION
  Report Type: 
  Country: None (occurrence: None)
  Receive Date: 20101108
  Receipt Date: 20101018
  Transmission Date: 20110411
  Serious: No
  Sender: FDA-Public Use
  Company Number: GB-ROCHE-734639

PATIENT
  Sex: Female

DRUGS (3)
  1. TAMIFLU [Suspect]
     Route: 065
     Dates: start: 20090501, end: 20090501
  2. TAMIFLU [Suspect]
     Dosage: TAKEN FOR 3 TO 4 DAYS
     Route: 065
     Dates: start: 20090501, end: 20090501
  3. TAMIFLU [Suspect]
     Route: 065
     Dates: start: 20090501, end: 20090501

REACTIONS (2)
  - NO ADVERSE EVENT [None]
  - OVERDOSE [None]
